FAERS Safety Report 7423194-2 (Version None)
Quarter: 2011Q2

REPORT INFORMATION
  Report Type: 
  Country: None (occurrence: None)
  Receive Date: 20110419
  Receipt Date: 20101109
  Transmission Date: 20111010
  Serious: Yes (Hospitalization, Other)
  Sender: FDA-Public Use
  Company Number: US-BAYER-201028846NA

PATIENT
  Age: 25 Year
  Sex: Female
  Weight: 56.689 kg

DRUGS (11)
  1. YAZ [Suspect]
  2. CELEXA [Concomitant]
     Indication: MOOD ALTERED
  3. NAPROXEN [Concomitant]
     Dosage: UNK
     Dates: start: 20090831
  4. YAZ [Suspect]
     Indication: PREMENSTRUAL SYNDROME
  5. CELEXA [Concomitant]
     Indication: DEPRESSION
     Dosage: 40 MG, QD
     Route: 048
     Dates: start: 20090821
  6. NAPROXEN [Concomitant]
     Dosage: UNK
     Dates: start: 20090721
  7. NAPROXEN [Concomitant]
     Dosage: 550 MG, PRN
     Dates: start: 20090831
  8. MULTIVITAMINS, COMBINATIONS [Concomitant]
     Dosage: UNK
     Dates: start: 20090801
  9. YAZ [Suspect]
     Indication: ACNE
     Dosage: UNK
     Dates: start: 20080801, end: 20090801
  10. CELEXA [Concomitant]
     Indication: ANXIETY
     Dosage: 20 MG, QD
     Route: 048
     Dates: start: 20080829, end: 20090712
  11. CELEXA [Concomitant]
     Indication: PREMENSTRUAL SYNDROME

REACTIONS (3)
  - BILIARY DYSKINESIA [None]
  - INJURY [None]
  - CHOLECYSTITIS CHRONIC [None]
